FAERS Safety Report 6783563-0 (Version None)
Quarter: 2010Q2

REPORT INFORMATION
  Report Type: 
  Country: None (occurrence: None)
  Receive Date: 20100622
  Receipt Date: 20100609
  Transmission Date: 20101027
  Serious: Yes (Other)
  Sender: FDA-Public Use
  Company Number: PHHY2010JP37796

PATIENT
  Age: 73 Year
  Sex: Male

DRUGS (2)
  1. DIOVAN HCT [Suspect]
     Indication: HYPERTENSION
     Dosage: 1 DF (80/12.5 MG) DAILY
     Route: 048
     Dates: end: 20100522
  2. NORVASC [Concomitant]
     Indication: HYPERTENSION
     Dosage: UNK
     Route: 048
     Dates: end: 20100522

REACTIONS (4)
  - DECREASED APPETITE [None]
  - DRUG ERUPTION [None]
  - PNEUMONIA [None]
  - PYREXIA [None]
